FAERS Safety Report 5720768-1 (Version None)
Quarter: 2008Q2

REPORT INFORMATION
  Report Type: 
  Country: None (occurrence: None)
  Receive Date: 20080429
  Receipt Date: 20080418
  Transmission Date: 20081010
  Serious: Yes (Hospitalization, Other)
  Sender: FDA-Public Use
  Company Number: PHHY2008BR06189

PATIENT
  Age: 80 Year
  Sex: Female
  Weight: 65 kg

DRUGS (2)
  1. SYMBICORT [Concomitant]
     Indication: BRONCHITIS
  2. ZOLEDRONIC ACID [Suspect]
     Dosage: 5 MG/100 ML

REACTIONS (7)
  - BLOOD CALCIUM DECREASED [None]
  - BLOOD MAGNESIUM DECREASED [None]
  - BLOOD POTASSIUM DECREASED [None]
  - FACIAL NERVE DISORDER [None]
  - MUSCLE RIGIDITY [None]
  - NEUROLOGICAL SYMPTOM [None]
  - TETANUS [None]
